FAERS Safety Report 18746371 (Version 3)
Quarter: 2025Q1

REPORT INFORMATION
  Report Type: Report from Study
  Country: US (occurrence: US)
  Receive Date: 20210115
  Receipt Date: 20250128
  Transmission Date: 20250409
  Serious: Yes (Hospitalization, Other)
  Sender: TAKEDA
  Company Number: US-SHIRE-US202023860

PATIENT
  Age: 37 Year
  Sex: Male

DRUGS (1)
  1. HUMAN IMMUNOGLOBULIN G [Suspect]
     Active Substance: HUMAN IMMUNOGLOBULIN G
     Indication: Primary immunodeficiency syndrome

REACTIONS (5)
  - Lyme disease [Unknown]
  - Road traffic accident [Unknown]
  - Infection [Unknown]
  - Illness [Unknown]
  - Cough [Unknown]

NARRATIVE: CASE EVENT DATE: 20250122
